FAERS Safety Report 11829922 (Version 1)
Quarter: 2015Q4

REPORT INFORMATION
  Report Type: Report from Study
  Country: MX (occurrence: MX)
  Receive Date: 20151213
  Receipt Date: 20151213
  Transmission Date: 20160305
  Serious: Yes (Hospitalization)
  Sender: FDA-Public Use
  Company Number: US-ASTRAZENECA-2015SF24111

PATIENT
  Age: 210 Day
  Sex: Male
  Weight: 6.1 kg

DRUGS (1)
  1. SYNAGIS [Suspect]
     Active Substance: PALIVIZUMAB
     Indication: PREMATURE BABY
     Route: 030
     Dates: start: 20150511

REACTIONS (2)
  - Crying [Recovering/Resolving]
  - Pneumonia viral [Recovering/Resolving]

NARRATIVE: CASE EVENT DATE: 20151129
